FAERS Safety Report 8806601 (Version 1)
Quarter: 2012Q4

REPORT INFORMATION
  Report Type: Spontaneous
  Country: US (occurrence: None)
  Receive Date: 20120918
  Receipt Date: 20120918
  Transmission Date: 20130627
  Serious: Yes (Hospitalization, Other)
  Sender: FDA-Public Use
  Company Number: 2012P1056232

PATIENT
  Age: 65 Year
  Sex: Female
  Weight: 99.79 kg

DRUGS (18)
  1. FENTANYL [Suspect]
     Indication: FIBROMYALGIA
     Dosage: 1 Patch; Q72H; TDER
     Route: 062
  2. FENTANYL [Suspect]
     Indication: CHRONIC PAIN
     Dosage: 1 Patch; Q72H; TDER
     Route: 062
  3. OXYCODONE [Suspect]
     Route: 048
  4. HYDROCHLOROTHIAZIDE\LISINOPRIL [Concomitant]
  5. LANTUS [Concomitant]
  6. LEVOTHYROXINE [Concomitant]
  7. LORAZEPAM [Concomitant]
  8. OMEPRAZOLE [Concomitant]
  9. DITROPAN [Concomitant]
  10. POTASSIUM CHLORIDE [Concomitant]
  11. ATIVAN [Concomitant]
  12. RESPERDAL [Concomitant]
  13. MULTIPLE VITAMIN [Concomitant]
  14. FIBER DRINK [Concomitant]
  15. ARICEPT [Concomitant]
  16. PLAVIX [Concomitant]
  17. FISH OIL [Concomitant]
  18. LACTULOSE [Concomitant]

REACTIONS (5)
  - Small intestinal obstruction [None]
  - Drug withdrawal syndrome [None]
  - Hyperhidrosis [None]
  - Anxiety [None]
  - Restlessness [None]
